FAERS Safety Report 5500910-8 (Version None)
Quarter: 2007Q4

REPORT INFORMATION
  Report Type: 
  Country: None (occurrence: None)
  Receive Date: 20071029
  Receipt Date: 20071022
  Transmission Date: 20080405
  Serious: Yes (Death)
  Sender: FDA-Public Use
  Company Number: LB-SANOFI-SYNTHELABO-A01200711906

PATIENT
  Age: 60 Year
  Sex: Male

DRUGS (6)
  1. LIPITOR [Concomitant]
     Indication: DYSLIPIDAEMIA
     Route: 048
     Dates: end: 20071021
  2. LOVENOX [Concomitant]
     Indication: THROMBOSIS PROPHYLAXIS
     Route: 042
     Dates: start: 20071019, end: 20071021
  3. ASPIRIN [Concomitant]
     Indication: ACUTE CORONARY SYNDROME
     Route: 048
     Dates: end: 20071021
  4. PLAVIX [Suspect]
     Indication: CORONARY ANGIOPLASTY
     Dosage: 300 MG LOADING DOSE FOLLOWED BY 75 MG DAILY
     Route: 048
     Dates: start: 20071019
  5. PLAVIX [Suspect]
     Indication: CORONARY ARTERIAL STENT INSERTION
     Dosage: 300 MG LOADING DOSE FOLLOWED BY 75 MG DAILY
     Route: 048
     Dates: start: 20071019
  6. PLAVIX [Suspect]
     Indication: ACUTE CORONARY SYNDROME
     Dosage: 300 MG LOADING DOSE FOLLOWED BY 75 MG DAILY
     Route: 048
     Dates: start: 20071019

REACTIONS (1)
  - THROMBOSIS IN DEVICE [None]
